APPROVED DRUG PRODUCT: TORSEMIDE
Active Ingredient: TORSEMIDE
Strength: 20MG
Dosage Form/Route: TABLET;ORAL
Application: A076110 | Product #003
Applicant: TEVA PHARMACEUTICALS USA INC
Approved: May 14, 2002 | RLD: No | RS: No | Type: DISCN